FAERS Safety Report 25732037 (Version 1)
Quarter: 2025Q3

REPORT INFORMATION
  Report Type: Spontaneous
  Country: US (occurrence: None)
  Receive Date: 20250827
  Receipt Date: 20250827
  Transmission Date: 20251020
  Serious: No
  Sender: FDA-CTU
  Company Number: None

PATIENT
  Age: 78 Year
  Sex: Male

DRUGS (1)
  1. KEVZARA [Suspect]
     Active Substance: SARILUMAB
     Route: 058
     Dates: start: 20250617, end: 20250724

REACTIONS (5)
  - Gingival bleeding [None]
  - Oral contusion [None]
  - Therapy interrupted [None]
  - Herpes zoster [None]
  - Platelet count decreased [None]
